FAERS Safety Report 4485073-2 (Version None)
Quarter: 2004Q4

REPORT INFORMATION
  Report Type: 
  Country: None (occurrence: None)
  Receive Date: 20041022
  Receipt Date: 20041022
  Transmission Date: 20050328
  Serious: No
  Sender: FDA-Public Use
  Company Number: None

PATIENT
  Age: 59 Year
  Sex: Female

DRUGS (1)
  1. REMERON [Suspect]
     Dosage: 15 MG AT BEDTIME

REACTIONS (4)
  - BACK PAIN [None]
  - FEELING JITTERY [None]
  - OEDEMA PERIPHERAL [None]
  - RESTLESSNESS [None]
